FAERS Safety Report 14441552 (Version 1)
Quarter: 2018Q1

REPORT INFORMATION
  Report Type: Spontaneous
  Country: US (occurrence: US)
  Receive Date: 20180125
  Receipt Date: 20180125
  Transmission Date: 20180509
  Serious: No
  Sender: FDA-Public Use
  Company Number: US-NOVOPROD-561402

PATIENT
  Age: 12 Year
  Sex: Male

DRUGS (4)
  1. NOVOSEVEN RT [Suspect]
     Active Substance: COAGULATION FACTOR VIIA RECOMBINANT HUMAN
     Dosage: 90 MCG/KG EVERY 2 HOURS
     Route: 042
     Dates: start: 201708
  2. NOVOSEVEN RT [Suspect]
     Active Substance: COAGULATION FACTOR VIIA RECOMBINANT HUMAN
     Dosage: 90 MCG/KG EVERY 4 HOURS
     Route: 042
     Dates: start: 201708, end: 201708
  3. NOVOSEVEN RT [Suspect]
     Active Substance: COAGULATION FACTOR VIIA RECOMBINANT HUMAN
     Indication: FACTOR IX DEFICIENCY
     Dosage: 90 MCG/KG EVERY 2 HOURS
     Route: 042
     Dates: start: 201708, end: 201708
  4. NOVOSEVEN RT [Suspect]
     Active Substance: COAGULATION FACTOR VIIA RECOMBINANT HUMAN
     Dosage: 270 MCG/KG, SINGLE
     Route: 042
     Dates: start: 201708, end: 201708

REACTIONS (1)
  - Mucosal haemorrhage [Recovered/Resolved]

NARRATIVE: CASE EVENT DATE: 201708
